FAERS Safety Report 16009376 (Version 3)
Quarter: 2019Q2

REPORT INFORMATION
  Report Type: Spontaneous
  Country: TH (occurrence: TH)
  Receive Date: 20190226
  Receipt Date: 20190430
  Transmission Date: 20190711
  Serious: Yes (Other)
  Sender: FDA-Public Use
  Company Number: TH-009507513-1902THA010991

PATIENT
  Age: 19 Year
  Sex: Female
  Weight: 58 kg

DRUGS (11)
  1. POSACONAZOLE [Suspect]
     Active Substance: POSACONAZOLE
     Indication: PROPHYLAXIS
  2. LIP-AMPHOTERICIN [Concomitant]
     Active Substance: AMPHOTERICIN B
     Dosage: 10 MILLIGRAM/KILOGRAM PER DAY (MKD)
     Route: 042
     Dates: start: 20140213, end: 20140412
  3. MICAFUNGIN. [Concomitant]
     Active Substance: MICAFUNGIN SODIUM
     Indication: MUCORMYCOSIS
     Dosage: 100 MILLIGRAM
     Route: 042
     Dates: start: 20140413, end: 20140419
  4. AMPHOTERICIN B. [Concomitant]
     Active Substance: AMPHOTERICIN B
     Indication: MUCORMYCOSIS
     Dosage: 1 MILLIGRAM/KILOGRAM PER DAY (MKD)
     Route: 042
     Dates: start: 20140120, end: 20140213
  5. DEFERIPRONE [Concomitant]
     Active Substance: DEFERIPRONE
     Indication: ANTIFUNGAL TREATMENT
     Dosage: 100 MILLIGRAM/KILOGRAM PER DAY
     Route: 048
     Dates: start: 20140128, end: 20140414
  6. DEFERIPRONE [Concomitant]
     Active Substance: DEFERIPRONE
     Indication: IRON OVERLOAD
  7. POSACONAZOLE [Suspect]
     Active Substance: POSACONAZOLE
     Indication: MUCORMYCOSIS
     Dosage: 5 MILLILITER, QID
     Route: 048
     Dates: start: 20140412, end: 20150331
  8. DEFERIPRONE [Concomitant]
     Active Substance: DEFERIPRONE
     Indication: EVIDENCE BASED TREATMENT
     Dosage: 100 MILLIGRAM/KILOGRAM PER DAY
     Route: 048
     Dates: start: 20141002, end: 20150218
  9. LIP-AMPHOTERICIN [Concomitant]
     Active Substance: AMPHOTERICIN B
     Indication: MUCORMYCOSIS
     Dosage: 5 MILLIGRAM/KILOGRAM PER DAY (MKD)
     Route: 042
     Dates: start: 20140213, end: 20140412
  10. AMPHOTERICIN B. [Concomitant]
     Active Substance: AMPHOTERICIN B
     Dosage: 1 MILLIGRAM/KILOGRAM PER DAY (MKD)
     Route: 042
     Dates: start: 20140424, end: 20140526
  11. LIP-AMPHOTERICIN [Concomitant]
     Active Substance: AMPHOTERICIN B
     Dosage: 7.5 MILLIGRAM/KILOGRAM PER DAY (MKD)
     Route: 042
     Dates: start: 20140213, end: 20140412

REACTIONS (2)
  - Mucormycosis [Recovered/Resolved]
  - Drug ineffective [Unknown]
